FAERS Safety Report 5682223-7 (Version None)
Quarter: 2008Q1

REPORT INFORMATION
  Report Type: 
  Country: None (occurrence: None)
  Receive Date: 20080327
  Receipt Date: 20080318
  Transmission Date: 20080703
  Serious: Yes (Other)
  Sender: FDA-Public Use
  Company Number: PHEH2008US01268

PATIENT
  Sex: Male

DRUGS (1)
  1. FORADIL [Suspect]
     Indication: ASTHMA
     Dates: start: 20080123, end: 20080125

REACTIONS (3)
  - ARTHRITIS [None]
  - CHROMATURIA [None]
  - OEDEMA PERIPHERAL [None]
